FAERS Safety Report 7729864-0 (Version None)
Quarter: 2011Q3

REPORT INFORMATION
  Report Type: 
  Country: None (occurrence: None)
  Receive Date: 20110906
  Receipt Date: 20110829
  Transmission Date: 20111222
  Serious: Yes (Other)
  Sender: FDA-Public Use
  Company Number: BE-BAYER-2011-078268

PATIENT
  Sex: Female

DRUGS (1)
  1. ANGELIQ [Suspect]
     Dosage: UNK

REACTIONS (3)
  - EYELID DISORDER [None]
  - EYE HAEMORRHAGE [None]
  - EYE DISORDER [None]
